FAERS Safety Report 15235235 (Version 4)
Quarter: 2020Q1

REPORT INFORMATION
  Report Type: Spontaneous
  Country: US (occurrence: US)
  Receive Date: 20180803
  Receipt Date: 20200318
  Transmission Date: 20200409
  Serious: Yes (Hospitalization)
  Sender: FDA-Public Use
  Company Number: US-BRISTOL-MYERS SQUIBB COMPANY-BMS-2018-071693

PATIENT
  Sex: Female
  Weight: 70.76 kg

DRUGS (2)
  1. ORENCIA [Suspect]
     Active Substance: ABATACEPT
     Indication: RHEUMATOID ARTHRITIS
     Dosage: 750 MG, QMO
     Route: 042
     Dates: start: 201805
  2. ORENCIA [Suspect]
     Active Substance: ABATACEPT
     Indication: PRODUCT USED FOR UNKNOWN INDICATION
     Dosage: 750 MILLIGRAM, Q4WK OVER 1 HOUR AT WEEK 4, OVER 1 HOUR AT WEEK 4, OVER 1 HOUR AT WEEK 4, OVER 1 HOUR
     Route: 042
     Dates: start: 201901

REACTIONS (6)
  - Bronchitis [Not Recovered/Not Resolved]
  - Back pain [Unknown]
  - Myalgia [Unknown]
  - Productive cough [Unknown]
  - Pain [Unknown]
  - Drug ineffective [Unknown]
